FAERS Safety Report 19362511 (Version 1)
Quarter: 2021Q2

REPORT INFORMATION
  Report Type: Other
  Country: US (occurrence: US)
  Receive Date: 20210601
  Receipt Date: 20210601
  Transmission Date: 20210717
  Serious: Yes (Other)
  Sender: FDA-Public Use
  Company Number: US-ROCHE-2839581

PATIENT
  Sex: Male

DRUGS (4)
  1. RITUXIMAB. [Concomitant]
     Active Substance: RITUXIMAB
     Indication: HAIRY CELL LEUKAEMIA
     Dosage: 375 MG/M2 EVERY WEEK FOR 4 WEEKS, EVERY MONTH FOR 3 MONTHS AND EVERY OTHER MONTH FOR 9 MONTHS.
     Route: 042
  2. VEMURAFENIB. [Suspect]
     Active Substance: VEMURAFENIB
     Indication: HAIRY CELL LEUKAEMIA
     Route: 048
  3. VEMURAFENIB. [Suspect]
     Active Substance: VEMURAFENIB
     Route: 048
  4. VEMURAFENIB. [Suspect]
     Active Substance: VEMURAFENIB
     Route: 048

REACTIONS (1)
  - Haemolysis [Recovered/Resolved]
